FAERS Safety Report 5259421-X (Version None)
Quarter: 2007Q1

REPORT INFORMATION
  Report Type: 
  Country: None (occurrence: None)
  Receive Date: 20070308
  Receipt Date: 20070301
  Transmission Date: 20070707
  Serious: Yes (Other)
  Sender: FDA-Public Use
  Company Number: CA-ABBOTT-06P-028-0354211-00

PATIENT
  Age: 46 Year
  Sex: Female

DRUGS (1)
  1. LIPIDIL [Suspect]
     Indication: HYPERCHOLESTEROLAEMIA
     Route: 065
     Dates: start: 20030101

REACTIONS (2)
  - DEPRESSION [None]
  - SUICIDAL IDEATION [None]
